FAERS Safety Report 22028026 (Version 1)
Quarter: 2023Q1

REPORT INFORMATION
  Report Type: Report from Study
  Country: CA (occurrence: CA)
  Receive Date: 20230223
  Receipt Date: 20230223
  Transmission Date: 20230417
  Serious: Yes (Other)
  Sender: FDA-Public Use
  Company Number: CA-002147023-NVSC2022CA050281

PATIENT
  Age: 78 Year
  Sex: Male
  Weight: 70 kg

DRUGS (5)
  1. PIRFENIDONE [Suspect]
     Active Substance: PIRFENIDONE
     Indication: Idiopathic pulmonary fibrosis
     Dosage: 2403 MG, QD
     Route: 048
  2. PIRFENIDONE [Suspect]
     Active Substance: PIRFENIDONE
     Indication: Pulmonary fibrosis
  3. GLYCOPYRRONIUM\INDACATEROL [Concomitant]
     Active Substance: GLYCOPYRRONIUM\INDACATEROL
     Indication: Product used for unknown indication
     Dosage: UNK (2.5 HRS)
     Route: 065
  4. VENTOLIN [Concomitant]
     Active Substance: ALBUTEROL SULFATE
     Indication: Product used for unknown indication
     Dosage: UNK, PRN
     Route: 065
  5. PREDNISONE [Concomitant]
     Active Substance: PREDNISONE
     Indication: Product used for unknown indication
     Dosage: UNK, QD
     Route: 065

REACTIONS (18)
  - Pulmonary hypertension [Unknown]
  - Aortic arteriosclerosis [Unknown]
  - Arteriosclerosis coronary artery [Unknown]
  - Pulmonary valve incompetence [Unknown]
  - Pulmonary artery dilatation [Unknown]
  - Pulmonary fibrosis [Unknown]
  - Emphysema [Unknown]
  - Obstructive airways disorder [Unknown]
  - Bronchiectasis [Unknown]
  - Pulmonary mass [Unknown]
  - Total lung capacity decreased [Unknown]
  - Forced vital capacity decreased [Unknown]
  - Lung disorder [Unknown]
  - Pectus carinatum [Unknown]
  - Aortic dilatation [Unknown]
  - Cardiomegaly [Unknown]
  - Intervertebral disc degeneration [Unknown]
  - Product availability issue [Unknown]
